FAERS Safety Report 6504920-3 (Version None)
Quarter: 2009Q4

REPORT INFORMATION
  Report Type: 
  Country: None (occurrence: None)
  Receive Date: 20091218
  Receipt Date: 20091210
  Transmission Date: 20100525
  Serious: Yes (Other)
  Sender: FDA-Public Use
  Company Number: GB-ROCHE-674215

PATIENT
  Age: 71 Year
  Sex: Female
  Weight: 100 kg

DRUGS (13)
  1. ORLISTAT [Suspect]
     Indication: OBESITY
     Route: 048
     Dates: start: 20071008
  2. BECLOMETHASONE DIPROPIONATE [Concomitant]
     Dates: start: 20071116
  3. BISOPROLOL [Concomitant]
     Indication: HYPERTENSION
     Dates: start: 20070107
  4. CLOPIDOGREL [Concomitant]
     Indication: HYPERTENSION
     Dates: start: 20080107
  5. CO-CODAMOL [Concomitant]
     Route: 048
     Dates: start: 20001201
  6. GLYCERYL TRINITRATE [Concomitant]
     Dates: start: 20020321
  7. LANSOPRAZOLE [Concomitant]
     Indication: GASTRIC DISORDER
     Route: 048
     Dates: start: 20050427
  8. LISINOPRIL [Concomitant]
     Indication: HYPERTENSION
     Route: 048
     Dates: start: 20080107
  9. MEBEVERINE HYDROCHLORIDE [Concomitant]
     Dates: start: 20050427
  10. PROZAC [Concomitant]
     Indication: DEPRESSION
     Route: 048
     Dates: start: 20061006
  11. SALAMOL [Concomitant]
     Dates: start: 20040909
  12. SIMVASTATIN [Concomitant]
     Route: 048
     Dates: start: 20040728
  13. WARFARIN SODIUM [Concomitant]
     Indication: THROMBOSIS PROPHYLAXIS
     Route: 048
     Dates: start: 20080107

REACTIONS (10)
  - ACUTE CORONARY SYNDROME [None]
  - ACUTE MYOCARDIAL INFARCTION [None]
  - ATRIAL FIBRILLATION [None]
  - COUGH [None]
  - DYSURIA [None]
  - INTERMITTENT CLAUDICATION [None]
  - JOINT SWELLING [None]
  - LOWER RESPIRATORY TRACT INFECTION [None]
  - MYOCARDIAL INFARCTION [None]
  - URINARY INCONTINENCE [None]
